FAERS Safety Report 14164445 (Version 1)
Quarter: 2017Q4

REPORT INFORMATION
  Report Type: Spontaneous
  Country: GB (occurrence: GB)
  Receive Date: 20171107
  Receipt Date: 20171107
  Transmission Date: 20180321
  Serious: No
  Sender: FDA-Public Use
  Company Number: GB-LUPIN PHARMACEUTICALS INC.-2017-02777

PATIENT

DRUGS (1)
  1. LISINOPRIL 10 MG TABLETS [Suspect]
     Active Substance: LISINOPRIL
     Indication: HYPERTENSION
     Dosage: 1 DF, QD
     Route: 063
     Dates: start: 20170502, end: 20170511

REACTIONS (2)
  - Exposure during breast feeding [Unknown]
  - No adverse event [Unknown]

NARRATIVE: CASE EVENT DATE: 20170502
